FAERS Safety Report 9434486 (Version 1)
Quarter: 2013Q3

REPORT INFORMATION
  Report Type: Report from Study
  Country: US (occurrence: US)
  Receive Date: 20130801
  Receipt Date: 20130801
  Transmission Date: 20140515
  Serious: Yes (Life-Threatening, Hospitalization)
  Sender: FDA-Public Use
  Company Number: US-UCBSA-093463

PATIENT
  Age: 40 Year
  Sex: Female
  Weight: 104.1 kg

DRUGS (10)
  1. CERTOLIZUMAB PEGOL [Suspect]
     Indication: RHEUMATOID ARTHRITIS
     Dosage: NO. OF DOSES RECEIVED: 25
     Route: 058
     Dates: start: 20120817, end: 20130702
  2. PHENOBARBITAL [Concomitant]
     Indication: EPILEPSY
     Dosage: 15MG/5ML QHS
     Route: 048
     Dates: start: 1991
  3. FOLIC ACID [Concomitant]
     Indication: PROPHYLAXIS
     Route: 048
     Dates: start: 1991
  4. TOPAMAX [Concomitant]
     Indication: EPILEPSY
     Route: 048
     Dates: start: 1991
  5. NAPROXEN [Concomitant]
     Indication: RHEUMATOID ARTHRITIS
     Route: 048
     Dates: start: 20120716
  6. NAPROXEN [Concomitant]
     Indication: RHEUMATOID ARTHRITIS
     Dosage: QHS
     Route: 048
     Dates: start: 20120716
  7. METHOTREXATE [Concomitant]
     Indication: RHEUMATOID ARTHRITIS
  8. PREDNISONE [Concomitant]
     Dates: start: 20130702
  9. BENADRYL [Concomitant]
     Indication: PRURITUS
     Dates: start: 20130702, end: 201307
  10. BENADRYL [Concomitant]
     Indication: PRURITUS
     Dates: start: 201307

REACTIONS (3)
  - Anaphylactic shock [Recovered/Resolved]
  - Food allergy [Recovered/Resolved with Sequelae]
  - Hyperglycaemia [Not Recovered/Not Resolved]
